FAERS Safety Report 5292380-2 (Version None)
Quarter: 2007Q2

REPORT INFORMATION
  Report Type: 
  Country: None (occurrence: None)
  Receive Date: 20070410
  Receipt Date: 20070329
  Transmission Date: 20071010
  Serious: Yes (Death, Hospitalization)
  Sender: FDA-Public Use
  Company Number: FR-ELI_LILLY_AND_COMPANY-FR200702004923

PATIENT
  Age: 72 Year
  Sex: Female

DRUGS (3)
  1. FORTEO [Suspect]
     Dosage: 20 UG, DAILY (1/D)
     Route: 058
     Dates: start: 20061124, end: 20070228
  2. FORTEO [Suspect]
     Dosage: 20 UG, DAILY (1/D)
     Route: 058
     Dates: start: 20070301
  3. CORTICOSTEROIDS [Concomitant]
     Indication: ASTHMA

REACTIONS (2)
  - DYSPNOEA [None]
  - RESPIRATORY FAILURE [None]
